FAERS Safety Report 15568718 (Version 1)
Quarter: 2018Q4

REPORT INFORMATION
  Report Type: Report from Study
  Country: None (occurrence: US)
  Receive Date: 20181031
  Receipt Date: 20181031
  Transmission Date: 20190205
  Serious: Yes (Hospitalization)
  Sender: FDA-Public Use
  Company Number: US-ABBVIE-18K-163-2538002-00

PATIENT
  Age: 60 Year
  Sex: Female

DRUGS (5)
  1. NINLARO [Concomitant]
     Active Substance: IXAZOMIB CITRATE
     Indication: PRODUCT USED FOR UNKNOWN INDICATION
  2. VENCLEXTA [Suspect]
     Active Substance: VENETOCLAX
     Indication: PLASMA CELL MYELOMA
     Dosage: 100MG/ONCE DAILY FOR 2 DAYS
     Route: 048
     Dates: start: 20180830, end: 20180831
  3. VENCLEXTA [Suspect]
     Active Substance: VENETOCLAX
     Dosage: THEN TAKE 2 TABLETS DAILY FOR 2 DAYS
     Route: 048
     Dates: start: 2018, end: 2018
  4. VENCLEXTA [Suspect]
     Active Substance: VENETOCLAX
     Dosage: THEN 4 TABLETS ONCE DAILY
     Route: 048
     Dates: start: 2018, end: 2018
  5. REVLIMID [Concomitant]
     Active Substance: LENALIDOMIDE
     Indication: PRODUCT USED FOR UNKNOWN INDICATION

REACTIONS (2)
  - Dehydration [Unknown]
  - Diarrhoea [Unknown]

NARRATIVE: CASE EVENT DATE: 20180904
